FAERS Safety Report 7293179-8 (Version None)
Quarter: 2011Q1

REPORT INFORMATION
  Report Type: 
  Country: None (occurrence: None)
  Receive Date: 20110215
  Receipt Date: 20110203
  Transmission Date: 20110831
  Serious: Yes (Hospitalization)
  Sender: FDA-Public Use
  Company Number: DE-ACTELION-A-CH2011-44146

PATIENT
  Sex: Male
  Weight: 108 kg

DRUGS (7)
  1. ENDOXAN [Concomitant]
  2. CONCOR [Concomitant]
  3. DECORTIN [Concomitant]
  4. RAMIPRIL [Concomitant]
  5. TRACLEER [Suspect]
     Dosage: 62.5 MG, BID
     Route: 048
     Dates: start: 20100322, end: 20100322
  6. TRACLEER [Suspect]
     Dosage: 62.5 MG, OD
     Route: 048
     Dates: start: 20100822
  7. AMLODIPINE [Concomitant]

REACTIONS (2)
  - TACHYCARDIA [None]
  - ANGINA PECTORIS [None]
